FAERS Safety Report 7586412-6 (Version None)
Quarter: 2011Q3

REPORT INFORMATION
  Report Type: 
  Country: None (occurrence: None)
  Receive Date: 20110701
  Receipt Date: 20101012
  Transmission Date: 20111222
  Serious: Yes (Other)
  Sender: FDA-Public Use
  Company Number: B0679490A

PATIENT
  Age: 36 Year
  Sex: Male

DRUGS (1)
  1. ESKAZOLE [Suspect]
     Indication: TOXOCARIASIS
     Dosage: 1000MG PER DAY
     Route: 048
     Dates: start: 20090914

REACTIONS (9)
  - BLOOD IMMUNOGLOBULIN E INCREASED [None]
  - COMPUTERISED TOMOGRAM THORAX ABNORMAL [None]
  - EOSINOPHIL COUNT INCREASED [None]
  - RASH [None]
  - PRURITUS [None]
  - LIVER DISORDER [None]
  - MALAISE [None]
  - HEPATIC ENZYME INCREASED [None]
  - GENERALISED ERYTHEMA [None]
